FAERS Safety Report 15279873 (Version 1)
Quarter: 2018Q3

REPORT INFORMATION
  Report Type: Spontaneous
  Country: US (occurrence: US)
  Receive Date: 20180730
  Receipt Date: 20180730
  Transmission Date: 20181010
  Serious: No
  Sender: FDA-Public Use
  Company Number: None

PATIENT
  Age: 61 Year
  Sex: Male

DRUGS (22)
  1. MELPHALAN. [Suspect]
     Active Substance: MELPHALAN
     Indication: PLASMA CELL MYELOMA
     Dosage: 20 MG ORAL QD DAYS 1?4/28 DAY?
     Route: 048
     Dates: start: 20180606, end: 20180730
  2. ONDANSETRON [Concomitant]
     Active Substance: ONDANSETRON
  3. OMEPRAZOLE. [Concomitant]
     Active Substance: OMEPRAZOLE
  4. LORAZEPAM. [Concomitant]
     Active Substance: LORAZEPAM
  5. PREDNISONE. [Concomitant]
     Active Substance: PREDNISONE
  6. QUALAQUIN [Concomitant]
     Active Substance: QUININE SULFATE
  7. FENOFIBRATE. [Concomitant]
     Active Substance: FENOFIBRATE
  8. OXYCODONE [Concomitant]
     Active Substance: OXYCODONE
  9. COENZYME Q?10 [Concomitant]
  10. METOPROLOL. [Concomitant]
     Active Substance: METOPROLOL
  11. METOCLOPRAMIDE. [Concomitant]
     Active Substance: METOCLOPRAMIDE
  12. ACYCLOVIR. [Concomitant]
     Active Substance: ACYCLOVIR
  13. COLACE [Concomitant]
     Active Substance: DOCUSATE SODIUM
  14. PAXIL [Concomitant]
     Active Substance: PAROXETINE HYDROCHLORIDE
  15. DEXAMETHASONE. [Concomitant]
     Active Substance: DEXAMETHASONE
  16. REVLIMID [Concomitant]
     Active Substance: LENALIDOMIDE
  17. LOVENOX [Concomitant]
     Active Substance: ENOXAPARIN SODIUM
  18. ESGIC [Concomitant]
     Active Substance: ACETAMINOPHEN\BUTALBITAL\CAFFEINE
  19. ALKERAN [Concomitant]
     Active Substance: MELPHALAN
  20. METHADONE [Concomitant]
     Active Substance: METHADONE HYDROCHLORIDE
  21. CYCLOBENZAPRINE. [Concomitant]
     Active Substance: CYCLOBENZAPRINE
  22. SENNA [Concomitant]
     Active Substance: SENNA LEAF\SENNOSIDES\SENNOSIDES A AND B

REACTIONS (1)
  - Disease progression [None]
